FAERS Safety Report 15473631 (Version 2)
Quarter: 2018Q4

REPORT INFORMATION
  Report Type: Spontaneous
  Country: TR (occurrence: TR)
  Receive Date: 20181008
  Receipt Date: 20181015
  Transmission Date: 20190205
  Serious: Yes (Other)
  Sender: FDA-Public Use
  Company Number: TR-PFIZER INC-2018399670

PATIENT
  Age: 62 Year
  Sex: Male

DRUGS (2)
  1. DOXORUBICIN HCL [Suspect]
     Active Substance: DOXORUBICIN HYDROCHLORIDE
     Indication: INSULINOMA
     Dosage: 50 MG/M2 DAILY, ON THE 1ST DAY, EVERY 3 WEEKS
  2. STREPTOZOCIN [Concomitant]
     Active Substance: STREPTOZOCIN
     Indication: INSULINOMA
     Dosage: 500 MG/M2 DAILY, FOR THE FIRST 5 DAYS, EVERY 6 WEEKS

REACTIONS (3)
  - Cerebrovascular accident [Unknown]
  - Cardiac failure congestive [Unknown]
  - Atrial fibrillation [Unknown]
